FAERS Safety Report 7937575-1 (Version None)
Quarter: 2011Q4

REPORT INFORMATION
  Report Type: 
  Country: None (occurrence: None)
  Receive Date: 20111123
  Receipt Date: 20111118
  Transmission Date: 20120403
  Serious: Yes (Other)
  Sender: FDA-Public Use
  Company Number: US-CEPHALON-2011005898

PATIENT
  Age: 30 Year
  Sex: Female
  Weight: 73 kg

DRUGS (3)
  1. ORTHO TRI-CYCLEN LO [Concomitant]
  2. NUVIGIL [Suspect]
     Indication: CIRCADIAN RHYTHM SLEEP DISORDER
     Route: 048
     Dates: start: 20110701
  3. VYVANSE [Concomitant]
     Dates: start: 20080101

REACTIONS (3)
  - DERMATITIS BULLOUS [None]
  - OEDEMA [None]
  - RASH PRURITIC [None]
